FAERS Safety Report 5221307-4 (Version None)
Quarter: 2007Q1

REPORT INFORMATION
  Report Type: 
  Country: None (occurrence: None)
  Receive Date: 20070126
  Receipt Date: 20070117
  Transmission Date: 20070707
  Serious: Yes (Hospitalization, Other)
  Sender: FDA-Public Use
  Company Number: US-PFIZER INC-2006132455

PATIENT
  Sex: Female
  Weight: 63.1 kg

DRUGS (2)
  1. ZOLOFT [Suspect]
     Indication: DEPRESSION
     Dates: start: 20040401, end: 20040512
  2. SEROQUEL [Suspect]

REACTIONS (8)
  - BULIMIA NERVOSA [None]
  - DEPRESSION [None]
  - FEELING ABNORMAL [None]
  - NIGHTMARE [None]
  - SCHIZOAFFECTIVE DISORDER [None]
  - SCHIZOPHRENIA, PARANOID TYPE [None]
  - SELF MUTILATION [None]
  - SUICIDAL IDEATION [None]
